FAERS Safety Report 6762545-9 (Version None)
Quarter: 2010Q2

REPORT INFORMATION
  Report Type: 
  Country: None (occurrence: None)
  Receive Date: 20100609
  Receipt Date: 20100604
  Transmission Date: 20101027
  Serious: Yes (Hospitalization)
  Sender: FDA-Public Use
  Company Number: DE-TEVA-235369ISR

PATIENT
  Age: 54 Year
  Sex: Male
  Weight: 83 kg

DRUGS (7)
  1. METFORMIN HCL [Suspect]
     Indication: TYPE 2 DIABETES MELLITUS
     Route: 048
     Dates: start: 20080701, end: 20100422
  2. ROSUVASTATIN [Suspect]
     Indication: HYPERLIPIDAEMIA
     Route: 048
     Dates: start: 20091008, end: 20100423
  3. METFORMIN HYDROCHLORIDE W/SITAGLIPTIN [Suspect]
     Dosage: 1000MG/50MG
     Route: 048
     Dates: start: 20090101, end: 20100423
  4. PIOGLITAZONE [Suspect]
     Indication: TYPE 2 DIABETES MELLITUS
     Route: 048
     Dates: start: 20090713, end: 20100423
  5. OMEGA-3 MARINE TRIGLYCERIDES [Suspect]
     Route: 048
     Dates: start: 20080701, end: 20100423
  6. ALLOPURINOL [Suspect]
     Indication: HYPERURICAEMIA
     Route: 048
     Dates: end: 20100423
  7. ALISKIREN [Suspect]
     Indication: HYPERTENSION
     Route: 048
     Dates: start: 20070101, end: 20100423

REACTIONS (1)
  - LIVER INJURY [None]
